FAERS Safety Report 9360127 (Version 1)
Quarter: 2013Q2

REPORT INFORMATION
  Report Type: Spontaneous
  Country: US (occurrence: None)
  Receive Date: 20130620
  Receipt Date: 20130620
  Transmission Date: 20140414
  Serious: No
  Sender: FDA-Public Use
  Company Number: None

PATIENT
  Age: 11 Year
  Sex: Male
  Weight: 90 kg

DRUGS (1)
  1. METFORMIN [Suspect]

REACTIONS (2)
  - Abdominal discomfort [None]
  - Malaise [None]
